FAERS Safety Report 10592417 (Version 4)
Quarter: 2015Q2

REPORT INFORMATION
  Report Type: Spontaneous
  Country: FR (occurrence: FR)
  Receive Date: 20141119
  Receipt Date: 20150416
  Transmission Date: 20150821
  Serious: Yes (Life-Threatening, Hospitalization, Other)
  Sender: FDA-Public Use
  Company Number: FR-ELI_LILLY_AND_COMPANY-FR201411005941

PATIENT
  Age: 60 Year
  Sex: Male
  Weight: 52 kg

DRUGS (3)
  1. ZYPADHERA [Suspect]
     Active Substance: OLANZAPINE PAMOATE
     Indication: SCHIZOPHRENIA
     Dosage: 300MG, Q 4 WKS
     Route: 030
     Dates: start: 201107
  2. SEROPLEX [Concomitant]
     Active Substance: ESCITALOPRAM OXALATE
     Indication: DEPRESSION
     Dosage: 10 MG, UNKNOWN
     Route: 048
  3. RIVOTRIL [Interacting]
     Active Substance: CLONAZEPAM
     Indication: EPILEPSY
     Dosage: 1MG, UNKOWN
     Route: 065

REACTIONS (23)
  - Dysphagia [Recovered/Resolved]
  - Asthenia [Unknown]
  - Agitation [Unknown]
  - Coma [Recovered/Resolved]
  - Psychomotor retardation [Recovered/Resolved]
  - Hyperglycaemia [Recovered/Resolved]
  - Altered state of consciousness [Recovered/Resolved]
  - Depressed level of consciousness [Recovered/Resolved]
  - Amnesia [Recovered/Resolved]
  - Somnolence [Recovered/Resolved]
  - Drug interaction [Recovered/Resolved]
  - Nervous system disorder [Recovered/Resolved]
  - Fatigue [Recovered/Resolved]
  - Disorientation [Unknown]
  - Confusional state [Recovered/Resolved]
  - Respiratory depression [Recovered/Resolved]
  - Muscle rigidity [Recovered/Resolved]
  - VIIth nerve paralysis [Recovered/Resolved]
  - Speech disorder [Recovered/Resolved]
  - Pneumonia aspiration [Recovered/Resolved]
  - Dysarthria [Recovered/Resolved]
  - Disturbance in attention [Recovered/Resolved]
  - Dyskinesia [Recovered/Resolved]

NARRATIVE: CASE EVENT DATE: 20141106
